FAERS Safety Report 11222567 (Version 2)
Quarter: 2015Q3

REPORT INFORMATION
  Report Type: Spontaneous
  Country: DE (occurrence: DE)
  Receive Date: 20150626
  Receipt Date: 20150716
  Transmission Date: 20151125
  Serious: Yes (Other)
  Sender: FDA-Public Use
  Company Number: ALCN2015DE003833

PATIENT
  Age: 82 Year
  Sex: Female
  Weight: 60 kg

DRUGS (7)
  1. EUTHYROX [Concomitant]
     Active Substance: LEVOTHYROXINE SODIUM
     Indication: THYROID DISORDER
     Dosage: UNK
     Route: 065
  2. CANDESARTAN [Concomitant]
     Active Substance: CANDESARTAN
     Indication: HYPERTONIA
     Dosage: UNK
     Route: 065
  3. ALENDRONSAEURE 1A PHARMA [Concomitant]
     Indication: OSTEOPOROSIS
     Dosage: UNK
     Route: 065
  4. ISOPTO-MAXITROL [Suspect]
     Active Substance: DEXAMETHASONE\NEOMYCIN SULFATE\POLYMYXIN B SULFATE
     Dosage: OINTMENT IN THE EVENING
     Route: 047
     Dates: start: 20150518, end: 20150526
  5. CORIFEO [Concomitant]
     Indication: HYPERTONIA
     Dosage: UNK
     Route: 065
  6. METOPROLOLSUCCINAAT [Concomitant]
     Active Substance: METOPROLOL SUCCINATE
     Indication: HYPERTONIA
     Dosage: UNK
     Route: 065
  7. ISOPTO-MAXITROL [Suspect]
     Active Substance: DEXAMETHASONE\NEOMYCIN SULFATE\POLYMYXIN B SULFATE
     Indication: POSTOPERATIVE CARE
     Dosage: 2 GTT, Q2H
     Route: 047
     Dates: start: 20150518, end: 20150526

REACTIONS (7)
  - Vision blurred [Not Recovered/Not Resolved]
  - Ocular discomfort [Not Recovered/Not Resolved]
  - Lacrimation increased [Recovering/Resolving]
  - Ill-defined disorder [Not Recovered/Not Resolved]
  - Visual impairment [Not Recovered/Not Resolved]
  - Eye pruritus [Recovering/Resolving]
  - Foreign body sensation in eyes [Recovered/Resolved]

NARRATIVE: CASE EVENT DATE: 20150519
